FAERS Safety Report 20190131 (Version 1)
Quarter: 2021Q4

REPORT INFORMATION
  Report Type: Spontaneous
  Country: US (occurrence: US)
  Receive Date: 20211215
  Receipt Date: 20211215
  Transmission Date: 20220303
  Serious: Yes (Other)
  Sender: FDA-Public Use
  Company Number: US-SUNOVION-2021SUN004654

PATIENT
  Age: 41 Year
  Sex: Female
  Weight: 72.562 kg

DRUGS (1)
  1. LATUDA [Suspect]
     Active Substance: LURASIDONE HYDROCHLORIDE
     Indication: Bipolar disorder
     Dosage: HIGHEST DOSE
     Route: 048
     Dates: start: 2019, end: 2020

REACTIONS (4)
  - Gastric ulcer [Recovered/Resolved]
  - Erosive oesophagitis [Recovered/Resolved]
  - Tooth injury [Unknown]
  - Vomiting [Recovered/Resolved]

NARRATIVE: CASE EVENT DATE: 20200101
